FAERS Safety Report 8761117 (Version 3)
Quarter: 2012Q4

REPORT INFORMATION
  Report Type: 
  Country: US (occurrence: US)
  Receive Date: 20120830
  Receipt Date: 20121205
  Transmission Date: 20130627
  Serious: Yes (Hospitalization, Disabling, Other)
  Sender: FDA-Public Use
  Company Number: US-009507513-1205USA04574

PATIENT

DRUGS (11)
  1. FOSAMAX [Suspect]
     Indication: OSTEOPOROSIS
     Dosage: 10 mg, qd
     Route: 048
     Dates: start: 20010508, end: 20060502
  2. FOSAMAX [Suspect]
     Dosage: 70 mg, qw
     Route: 048
     Dates: start: 20060519, end: 20080316
  3. ALENDRONATE SODIUM [Suspect]
     Indication: OSTEOPOROSIS
     Dosage: 70 mg, qw
     Dates: start: 20080412, end: 20100309
  4. PROTONIX [Concomitant]
     Indication: GASTROOESOPHAGEAL REFLUX DISEASE
  5. LEVOXYL [Concomitant]
  6. ZANTAC [Concomitant]
  7. RANITIDINE [Concomitant]
  8. HYDROXYZINE [Concomitant]
  9. ATARAX (ALPRAZOLAM) [Concomitant]
  10. VISTARIL [Concomitant]
  11. CALCIUM (UNSPECIFIED) [Concomitant]

REACTIONS (62)
  - Femur fracture [Not Recovered/Not Resolved]
  - Osteoporosis [Not Recovered/Not Resolved]
  - Stress fracture [Not Recovered/Not Resolved]
  - Radius fracture [Unknown]
  - Open reduction of fracture [Unknown]
  - Medical device removal [Unknown]
  - Low turnover osteopathy [Not Recovered/Not Resolved]
  - Femur fracture [Not Recovered/Not Resolved]
  - Open reduction of fracture [Unknown]
  - Sciatica [Unknown]
  - Hypothyroidism [Unknown]
  - Nerve block [Unknown]
  - Vitamin D deficiency [Unknown]
  - Autoimmune thyroiditis [Unknown]
  - Fractured coccyx [Unknown]
  - Nerve block [Unknown]
  - Human papilloma virus test positive [Unknown]
  - Skin lesion [Unknown]
  - Fall [Unknown]
  - Breast pain [Unknown]
  - Cerumen impaction [Unknown]
  - Nerve root compression [Unknown]
  - Lumbar radiculopathy [Unknown]
  - Musculoskeletal discomfort [Unknown]
  - Intervertebral disc degeneration [Unknown]
  - Spinal osteoarthritis [Unknown]
  - Sinusitis [Unknown]
  - Urticaria chronic [Not Recovered/Not Resolved]
  - Upper respiratory tract infection [Unknown]
  - Autoimmune thyroiditis [Unknown]
  - Weight increased [Unknown]
  - Pollakiuria [Unknown]
  - Migraine [Unknown]
  - Nocturia [Unknown]
  - Dry eye [Unknown]
  - Actinic keratosis [Unknown]
  - Myelopathy [Unknown]
  - Osteopenia [Unknown]
  - Dysphonia [Unknown]
  - Actinic keratosis [Unknown]
  - Temporomandibular joint syndrome [Unknown]
  - Hyperkeratosis [Unknown]
  - Mass [Unknown]
  - Somnolence [Unknown]
  - Bunion operation [Unknown]
  - Bunion [Unknown]
  - Colon adenoma [Unknown]
  - Large intestine polyp [Unknown]
  - Carpal tunnel syndrome [Unknown]
  - Sinusitis [Unknown]
  - Paraesthesia [Unknown]
  - Cardiac murmur [Unknown]
  - Ulcer [Unknown]
  - Intervertebral disc displacement [Unknown]
  - Sciatica [Unknown]
  - Osteoarthritis [Unknown]
  - Angioedema [Not Recovered/Not Resolved]
  - Urticaria [Unknown]
  - Nausea [Unknown]
  - Constipation [Unknown]
  - Pain in extremity [Unknown]
  - Back pain [Unknown]
